FAERS Safety Report 5435774-4 (Version None)
Quarter: 2007Q3

REPORT INFORMATION
  Report Type: 
  Country: None (occurrence: None)
  Receive Date: 20070828
  Receipt Date: 20070828
  Transmission Date: 20080115
  Serious: Yes (Hospitalization)
  Sender: FDA-Public Use
  Company Number: None

PATIENT
  Sex: Female
  Weight: 60.5 kg

DRUGS (6)
  1. SUNITINIB [Suspect]
     Indication: RENAL CANCER METASTATIC
     Dosage: 50 MG QD 28 DAYS PO
     Route: 048
     Dates: start: 20070504
  2. LORTAB [Concomitant]
  3. MORPHINE CONCENTRATE [Concomitant]
  4. PHENERGAN HCL [Concomitant]
  5. PROZAC [Concomitant]
  6. MILK OF MAGNESIA [Concomitant]

REACTIONS (5)
  - ABDOMINAL PAIN [None]
  - ADRENAL DISORDER [None]
  - DISEASE PROGRESSION [None]
  - RETROPERITONEAL LYMPHADENOPATHY [None]
  - SPINAL DISORDER [None]
